FAERS Safety Report 10156587 (Version 1)
Quarter: 2014Q2

REPORT INFORMATION
  Report Type: Spontaneous
  Country: GB (occurrence: GB)
  Receive Date: 20140507
  Receipt Date: 20140507
  Transmission Date: 20141212
  Serious: Yes (Hospitalization)
  Sender: FDA-Public Use
  Company Number: GB-ROCHE-1394737

PATIENT
  Age: 61 Year
  Sex: Male

DRUGS (2)
  1. MABTHERA [Suspect]
     Indication: VASCULITIS
     Route: 042
     Dates: start: 20140314, end: 20140328
  2. PREDNISOLONE [Concomitant]
     Indication: VASCULITIS
     Route: 048

REACTIONS (5)
  - Angiodermatitis [Unknown]
  - Electrocardiogram change [Recovering/Resolving]
  - Chest discomfort [Recovering/Resolving]
  - Myocardial infarction [Recovering/Resolving]
  - Troponin increased [Recovering/Resolving]
